FAERS Safety Report 25352083 (Version 1)
Quarter: 2025Q2

REPORT INFORMATION
  Report Type: Spontaneous
  Country: US (occurrence: None)
  Receive Date: 20250522
  Receipt Date: 20250522
  Transmission Date: 20250717
  Serious: Yes (Other)
  Sender: FDA-CTU
  Company Number: None

PATIENT

DRUGS (4)
  1. LORAZEPAM [Suspect]
     Active Substance: LORAZEPAM
     Indication: Vertigo
     Dosage: OTHER QUANTITY : 1 TABLET(S);?FREQUENCY : 3 TIMES A DAY;?
     Route: 048
  2. MOUNJARO [Suspect]
     Active Substance: TIRZEPATIDE
     Indication: Type 2 diabetes mellitus
     Route: 058
  3. GINGER [Concomitant]
     Active Substance: GINGER
  4. HERBALS [Concomitant]
     Active Substance: HERBALS

REACTIONS (11)
  - Migraine [None]
  - Fatigue [None]
  - Nausea [None]
  - Vomiting [None]
  - Dyspepsia [None]
  - Panic attack [None]
  - Diabetic retinopathy [None]
  - Dizziness [None]
  - Constipation [None]
  - Lymphadenopathy [None]
  - Suicidal ideation [None]

NARRATIVE: CASE EVENT DATE: 20250501
